FAERS Safety Report 6813605-5 (Version None)
Quarter: 2010Q3

REPORT INFORMATION
  Report Type: 
  Country: None (occurrence: None)
  Receive Date: 20100701
  Receipt Date: 20100521
  Transmission Date: 20110219
  Serious: Yes (Death, Life-Threatening, Other)
  Sender: FDA-Public Use
  Company Number: US-BAXTER-2009BH017016

PATIENT
  Age: 82 Year
  Sex: Female
  Weight: 35 kg

DRUGS (27)
  1. HEPARIN SODIUM [Suspect]
     Indication: HAEMODIALYSIS
     Route: 040
     Dates: start: 20070101, end: 20071101
  2. HEPARIN SODIUM [Suspect]
     Indication: THROMBECTOMY
     Route: 040
     Dates: start: 20070101, end: 20071101
  3. HEPARIN SODIUM [Suspect]
     Indication: PRODUCT USED FOR UNKNOWN INDICATION
     Route: 040
     Dates: start: 20070101, end: 20071101
  4. HEPARIN SODIUM [Suspect]
     Route: 041
     Dates: start: 20070101, end: 20071101
  5. HEPARIN SODIUM [Suspect]
     Route: 041
     Dates: start: 20070101, end: 20071101
  6. HEPARIN SODIUM [Suspect]
     Route: 041
     Dates: start: 20070101, end: 20071101
  7. HEPARIN SODIUM [Suspect]
     Route: 058
     Dates: start: 20071104, end: 20071107
  8. HEPARIN SODIUM [Suspect]
     Route: 058
     Dates: start: 20071104, end: 20071107
  9. HEPARIN SODIUM [Suspect]
     Route: 058
     Dates: start: 20071104, end: 20071107
  10. HEPARIN SODIUM [Suspect]
     Route: 065
     Dates: start: 20071103, end: 20071103
  11. HEPARIN SODIUM [Suspect]
     Route: 065
     Dates: start: 20071103, end: 20071103
  12. HEPARIN SODIUM [Suspect]
     Route: 065
     Dates: start: 20071103, end: 20071103
  13. AMIODARONE HYDROCHLORIDE [Concomitant]
     Indication: PRODUCT USED FOR UNKNOWN INDICATION
     Route: 048
  14. BUSPIRONE HYDROCHLORIDE [Concomitant]
     Indication: PRODUCT USED FOR UNKNOWN INDICATION
     Route: 065
  15. LOCUASTI SODIUM [Concomitant]
     Indication: PRODUCT USED FOR UNKNOWN INDICATION
     Route: 065
  16. LEXAPRO [Concomitant]
     Indication: PRODUCT USED FOR UNKNOWN INDICATION
     Route: 048
  17. LISINOPRIL [Concomitant]
     Indication: PRODUCT USED FOR UNKNOWN INDICATION
     Route: 065
  18. NITRGLYCERIN TRANSDERMAL SYSTEM [Concomitant]
     Indication: PRODUCT USED FOR UNKNOWN INDICATION
     Route: 065
  19. TOPROL-XL [Concomitant]
     Indication: PRODUCT USED FOR UNKNOWN INDICATION
     Route: 065
  20. MULTI-VITAMINS [Concomitant]
     Indication: PRODUCT USED FOR UNKNOWN INDICATION
     Route: 065
  21. ASPIRIN [Concomitant]
     Indication: PRODUCT USED FOR UNKNOWN INDICATION
     Route: 048
  22. ASCORBIC ACID [Concomitant]
     Indication: PRODUCT USED FOR UNKNOWN INDICATION
     Route: 048
  23. MEGESTROL ACETATE [Concomitant]
     Indication: PRODUCT USED FOR UNKNOWN INDICATION
     Route: 048
  24. PROPOXYPHENE NAPSYLATE W/ ACETAMINOPHEN [Concomitant]
     Indication: PRODUCT USED FOR UNKNOWN INDICATION
     Route: 048
  25. TRAMADOL HCL [Concomitant]
     Indication: PRODUCT USED FOR UNKNOWN INDICATION
     Route: 048
  26. ANCEF [Concomitant]
     Indication: PRODUCT USED FOR UNKNOWN INDICATION
     Route: 042
  27. FLAGYL [Concomitant]
     Indication: PRODUCT USED FOR UNKNOWN INDICATION
     Route: 048
     Dates: start: 20071101, end: 20071103

REACTIONS (14)
  - ARTERIOSCLEROSIS [None]
  - BLOOD PRESSURE DECREASED [None]
  - CARDIO-RESPIRATORY ARREST [None]
  - COAGULOPATHY [None]
  - DEMENTIA [None]
  - DIARRHOEA [None]
  - DYSPNOEA [None]
  - FATIGUE [None]
  - HAEMORRHAGE [None]
  - MENTAL STATUS CHANGES [None]
  - NAUSEA [None]
  - RESPIRATORY DISTRESS [None]
  - UNRESPONSIVE TO STIMULI [None]
  - VOMITING [None]
